FAERS Safety Report 7556428-4 (Version None)
Quarter: 2011Q2

REPORT INFORMATION
  Report Type: 
  Country: None (occurrence: None)
  Receive Date: 20110620
  Receipt Date: 20110609
  Transmission Date: 20111010
  Serious: Yes (Hospitalization)
  Sender: FDA-Public Use
  Company Number: PL-ASTELLAS-2011EU003693

PATIENT
  Sex: Male

DRUGS (3)
  1. PREDNISONE [Concomitant]
     Dosage: UNK
     Route: 048
  2. PIMECROLIMUS [Concomitant]
     Dosage: UNK
     Route: 065
     Dates: start: 20070815
  3. TACROLIMUS [Suspect]
     Indication: DERMATITIS ATOPIC
     Dosage: 0.03 %, UNKNOWN/D
     Route: 065
     Dates: start: 20100804

REACTIONS (2)
  - ROTAVIRUS INFECTION [None]
  - VOCAL CORD THICKENING [None]
